FAERS Safety Report 19101422 (Version 1)
Quarter: 2021Q2

REPORT INFORMATION
  Report Type: Spontaneous
  Country: CA (occurrence: CA)
  Receive Date: 20210407
  Receipt Date: 20210407
  Transmission Date: 20210717
  Serious: Yes (Other)
  Sender: FDA-Public Use
  Company Number: CA-TAKEDA-2021TUS021311

PATIENT
  Age: 19 Year
  Sex: Female

DRUGS (9)
  1. AVAMYS [Suspect]
     Active Substance: FLUTICASONE FUROATE
     Indication: PRODUCT USED FOR UNKNOWN INDICATION
     Dosage: UNK
     Route: 065
  2. SALBUTAMOL [Suspect]
     Active Substance: ALBUTEROL
     Indication: PRODUCT USED FOR UNKNOWN INDICATION
     Dosage: UNK
     Route: 065
  3. AZATHIOPRINE. [Suspect]
     Active Substance: AZATHIOPRINE
     Indication: PRODUCT USED FOR UNKNOWN INDICATION
     Dosage: 125 MILLIGRAM, QD
     Route: 048
  4. BREO ELLIPTA [Suspect]
     Active Substance: FLUTICASONE FUROATE\VILANTEROL TRIFENATATE
     Indication: PRODUCT USED FOR UNKNOWN INDICATION
     Dosage: UNK
     Route: 065
  5. LANSPORAZOLE [Suspect]
     Active Substance: LANSOPRAZOLE
     Indication: PRODUCT USED FOR UNKNOWN INDICATION
     Dosage: 15 MILLIGRAM, QD
     Route: 048
  6. CALCIUM [Suspect]
     Active Substance: CALCIUM
     Indication: PRODUCT USED FOR UNKNOWN INDICATION
     Dosage: 500 MILLIGRAM, BID
     Route: 065
  7. GABAPENTIN. [Suspect]
     Active Substance: GABAPENTIN
     Indication: PRODUCT USED FOR UNKNOWN INDICATION
     Dosage: 200 MILLIGRAM, QD
     Route: 065
  8. PREDNISONE. [Suspect]
     Active Substance: PREDNISONE
     Indication: PRODUCT USED FOR UNKNOWN INDICATION
     Dosage: UNK
     Route: 065
  9. VITAMIN D NOS [Suspect]
     Active Substance: VITAMIN D NOS
     Indication: PRODUCT USED FOR UNKNOWN INDICATION
     Dosage: UNK
     Route: 048

REACTIONS (28)
  - Asthma [Unknown]
  - Bloody discharge [Unknown]
  - Chest pain [Unknown]
  - Subendocardial ischaemia [Unknown]
  - Breast adenoma [Unknown]
  - Myocardial oedema [Unknown]
  - Nasal congestion [Unknown]
  - Neuropathy peripheral [Unknown]
  - Dyspnoea [Unknown]
  - Paranasal sinus hypersecretion [Unknown]
  - Cholangitis sclerosing [Unknown]
  - Condition aggravated [Unknown]
  - Sinus disorder [Unknown]
  - Loss of personal independence in daily activities [Unknown]
  - Pulmonary mass [Unknown]
  - Eosinophil count increased [Unknown]
  - Pericardial disease [Unknown]
  - Troponin increased [Unknown]
  - Wheezing [Unknown]
  - Anxiety [Unknown]
  - Blood test abnormal [Unknown]
  - Pericardial effusion [Unknown]
  - Weight decreased [Unknown]
  - Cough [Unknown]
  - Electrocardiogram change [Unknown]
  - Gastrooesophageal reflux disease [Unknown]
  - Granulocyte count increased [Unknown]
  - Therapeutic product effect incomplete [Unknown]
